FAERS Safety Report 9137440 (Version 1)
Quarter: 2013Q1

REPORT INFORMATION
  Report Type: Report from Study
  Country: AR (occurrence: AR)
  Receive Date: 20130304
  Receipt Date: 20130304
  Transmission Date: 20140127
  Serious: Yes (Other)
  Sender: FDA-Public Use
  Company Number: AR-ABBOTT-13P-007-1054765-00

PATIENT
  Age: 65 Year
  Sex: Female

DRUGS (3)
  1. HUMIRA [Suspect]
     Indication: RHEUMATOID ARTHRITIS
     Dates: start: 20070718
  2. ALPRAZOLAM [Concomitant]
     Indication: BIPOLAR DISORDER
  3. LITHIUM [Concomitant]
     Indication: BIPOLAR DISORDER

REACTIONS (4)
  - Convulsion [Recovered/Resolved]
  - Hallucination, visual [Recovered/Resolved]
  - Syncope [Recovered/Resolved]
  - Foaming at mouth [Unknown]
